FAERS Safety Report 19798534 (Version 7)
Quarter: 2021Q4

REPORT INFORMATION
  Report Type: Report from Study
  Country: None (occurrence: US)
  Receive Date: 20210906
  Receipt Date: 20211021
  Transmission Date: 20220304
  Serious: Yes (Hospitalization, Other)
  Sender: FDA-Public Use
  Company Number: US-ABBVIE-21K-163-3875640-00

PATIENT
  Age: 71 Year
  Sex: Female

DRUGS (15)
  1. DUOPA [Suspect]
     Active Substance: CARBIDOPA\LEVODOPA
     Indication: Parkinson^s disease
     Route: 050
     Dates: start: 20201116, end: 202011
  2. DUOPA [Suspect]
     Active Substance: CARBIDOPA\LEVODOPA
     Route: 050
     Dates: start: 20201123, end: 202109
  3. DUOPA [Suspect]
     Active Substance: CARBIDOPA\LEVODOPA
     Route: 050
  4. DUOPA [Suspect]
     Active Substance: CARBIDOPA\LEVODOPA
     Route: 050
     Dates: end: 202108
  5. SINEMET [Concomitant]
     Active Substance: CARBIDOPA\LEVODOPA
     Indication: Product used for unknown indication
     Dosage: 25-100 MG
     Route: 048
  6. CLONAZEPAM [Concomitant]
     Active Substance: CLONAZEPAM
     Indication: Product used for unknown indication
     Route: 048
  7. LEVOTHYROXINE [Concomitant]
     Active Substance: LEVOTHYROXINE
     Indication: Product used for unknown indication
     Route: 048
  8. ALENDRONATE [Concomitant]
     Active Substance: ALENDRONATE SODIUM
     Indication: Product used for unknown indication
     Route: 048
  9. SERTRALINE [Concomitant]
     Active Substance: SERTRALINE HYDROCHLORIDE
     Indication: Product used for unknown indication
     Route: 048
  10. CALCIUM [Concomitant]
     Active Substance: CALCIUM
     Indication: Product used for unknown indication
     Dosage: CALCIUM 600- D3 PLUS, 1 DOSE
     Route: 048
  11. NEUPRO [Concomitant]
     Active Substance: ROTIGOTINE
     Indication: Product used for unknown indication
     Dosage: 2 MG/24 HOUR
     Route: 061
  12. VITAMIN D2 [Concomitant]
     Active Substance: ERGOCALCIFEROL
     Indication: Product used for unknown indication
     Route: 048
  13. RYTARY [Concomitant]
     Active Substance: CARBIDOPA\LEVODOPA
     Indication: Product used for unknown indication
     Dosage: 48.75-195MG
     Route: 048
  14. PFIZER-BIONTECH COVID-19 VACCINE [Concomitant]
     Active Substance: TOZINAMERAN
     Indication: COVID-19 immunisation
     Route: 030
  15. PFIZER-BIONTECH COVID-19 VACCINE [Concomitant]
     Active Substance: TOZINAMERAN
     Route: 030

REACTIONS (39)
  - Living in residential institution [Unknown]
  - Hospitalisation [Unknown]
  - Head injury [Unknown]
  - Skull fracture [Recovered/Resolved]
  - Surgery [Unknown]
  - Lethargy [Unknown]
  - Encephalopathy [Unknown]
  - Living in residential institution [Recovered/Resolved]
  - Azotaemia [Unknown]
  - Acute kidney injury [Unknown]
  - Renal disorder [Unknown]
  - Fall [Recovered/Resolved]
  - Hospitalisation [Recovered/Resolved]
  - Device programming error [Unknown]
  - Urinary tract infection [Not Recovered/Not Resolved]
  - Mobility decreased [Unknown]
  - Medical device site scab [Not Recovered/Not Resolved]
  - Head injury [Recovered/Resolved]
  - Device related infection [Unknown]
  - Malaise [Unknown]
  - Headache [Not Recovered/Not Resolved]
  - Fall [Recovered/Resolved]
  - Prosopagnosia [Unknown]
  - Stoma site hypergranulation [Unknown]
  - Stoma site discharge [Not Recovered/Not Resolved]
  - Stoma site odour [Unknown]
  - Stoma site reaction [Unknown]
  - Stoma site erythema [Not Recovered/Not Resolved]
  - Stoma site pain [Not Recovered/Not Resolved]
  - Device leakage [Unknown]
  - Device loosening [Unknown]
  - Communication disorder [Unknown]
  - Aphasia [Unknown]
  - Dysarthria [Unknown]
  - Eating disorder [Recovering/Resolving]
  - Failure to thrive [Not Recovered/Not Resolved]
  - Vomiting [Not Recovered/Not Resolved]
  - Gait disturbance [Unknown]
  - Renal impairment [Recovering/Resolving]

NARRATIVE: CASE EVENT DATE: 20210101
